FAERS Safety Report 11795135 (Version 1)
Quarter: 2015Q4

REPORT INFORMATION
  Report Type: Spontaneous
  Country: US (occurrence: None)
  Receive Date: 20151202
  Receipt Date: 20151202
  Transmission Date: 20160305
  Serious: No
  Sender: FDA-Public Use
  Company Number: US-MDT-ADR-2015-02270

PATIENT
  Age: 60 Year
  Sex: Female

DRUGS (2)
  1. COMPOUNDED BACLOFEN INTRATHECAL - 2.0 MG/ML [Suspect]
     Active Substance: BACLOFEN
     Indication: PAIN
     Dosage: 1.7025 MG/DAY
  2. FENTANYL INTRATHECAL - 25,000. MCG/ML [Suspect]
     Active Substance: FENTANYL
     Dosage: 21,281. MCG/DAY

REACTIONS (2)
  - Feeling abnormal [None]
  - Device power source issue [None]
